FAERS Safety Report 13431050 (Version 1)
Quarter: 2017Q2

REPORT INFORMATION
  Report Type: Report from Study
  Country: DE (occurrence: DE)
  Receive Date: 20170412
  Receipt Date: 20170412
  Transmission Date: 20170830
  Serious: Yes (Other)
  Sender: FDA-Public Use
  Company Number: PHHY2017DE030567

PATIENT
  Sex: Male

DRUGS (8)
  1. FLUOROURACIL. [Concomitant]
     Active Substance: FLUOROURACIL
     Indication: NEOPLASM MALIGNANT
     Dosage: 748 MG, QD
     Route: 065
     Dates: start: 20150817
  2. GRANISETRON [Concomitant]
     Active Substance: GRANISETRON
     Indication: NEOPLASM MALIGNANT
     Dosage: 1 MG, QD
     Route: 065
     Dates: start: 20150817
  3. OXALIPLATIN. [Concomitant]
     Active Substance: OXALIPLATIN
     Indication: NEOPLASM MALIGNANT
     Dosage: 160 MG, QD
     Route: 065
     Dates: start: 20150817
  4. TASIGNA [Suspect]
     Active Substance: NILOTINIB
     Dosage: 600 MG, QD
     Route: 065
     Dates: start: 20160229
  5. DEXAMETHASONE. [Concomitant]
     Active Substance: DEXAMETHASONE
     Indication: NEOPLASM MALIGNANT
     Dosage: 8 MG, QD
     Route: 065
     Dates: start: 20150817
  6. TASIGNA [Suspect]
     Active Substance: NILOTINIB
     Indication: CHRONIC MYELOID LEUKAEMIA
     Dosage: 600 MG, QD
     Route: 065
     Dates: start: 20150619, end: 20150727
  7. TASIGNA [Suspect]
     Active Substance: NILOTINIB
     Dosage: UNK MG, QD
     Route: 065
     Dates: start: 20160201, end: 20160228
  8. FOLIC ACID. [Concomitant]
     Active Substance: FOLIC ACID
     Indication: NEOPLASM MALIGNANT
     Dosage: 750 MG, QD
     Route: 065
     Dates: start: 20150817

REACTIONS (4)
  - Prostate cancer [Not Recovered/Not Resolved]
  - Prostatic specific antigen [Unknown]
  - Second primary malignancy [Not Recovered/Not Resolved]
  - Benign prostatic hyperplasia [Unknown]

NARRATIVE: CASE EVENT DATE: 20161028
